FAERS Safety Report 9652761 (Version 1)
Quarter: 2013Q4

REPORT INFORMATION
  Report Type: Spontaneous
  Country: US (occurrence: US)
  Receive Date: 20131029
  Receipt Date: 20131029
  Transmission Date: 20140711
  Serious: No
  Sender: FDA-Public Use
  Company Number: US-BIOGENIDEC-2013BI077268

PATIENT
  Age: 53 Year
  Sex: Male

DRUGS (8)
  1. TECFIDERA [Suspect]
     Indication: MULTIPLE SCLEROSIS
     Route: 048
     Dates: start: 20130730
  2. AMPYRA [Concomitant]
  3. VIAGRA [Concomitant]
  4. BACLOFEN [Concomitant]
  5. PROAIR HFA [Concomitant]
  6. NEXIUM [Concomitant]
  7. FLOMAX [Concomitant]
  8. COMPAZINE [Concomitant]

REACTIONS (2)
  - Overdose [Recovered/Resolved]
  - Energy increased [Unknown]
